FAERS Safety Report 12423221 (Version 1)
Quarter: 2016Q2

REPORT INFORMATION
  Report Type: Spontaneous
  Country: US (occurrence: None)
  Receive Date: 20160531
  Receipt Date: 20160531
  Transmission Date: 20160815
  Serious: Yes (Other)
  Sender: FDA-Public Use
  Company Number: None

PATIENT
  Age: 80 Year
  Sex: Male
  Weight: 68.04 kg

DRUGS (17)
  1. ATORVASTATIN [Concomitant]
     Active Substance: ATORVASTATIN
  2. O2 CONCENTRATOR (ELEC) [Concomitant]
  3. O2 PORTABLE TANKS + REGULATOR [Concomitant]
  4. OMEGA 3 [Concomitant]
     Active Substance: OMEGA-3 FATTY ACIDS
  5. VITAMIN D3 [Concomitant]
     Active Substance: CHOLECALCIFEROL
  6. MULTI-VITMAIN [Concomitant]
  7. CIPRO [Suspect]
     Active Substance: CIPROFLOXACIN HYDROCHLORIDE
     Indication: DIVERTICULITIS
     Dosage: 1 TABLET EVERY 12 HOURS
     Route: 048
     Dates: start: 20150819, end: 20150824
  8. ADVAIR HFA [Concomitant]
     Active Substance: FLUTICASONE PROPIONATE\SALMETEROL XINAFOATE
  9. AIR PUMP FOR ALBUTEROL [Concomitant]
  10. SUPER B COMPLEX WITH C [Concomitant]
  11. ALBUTEROL (NEBULIZER) [Concomitant]
  12. PROBIOTICS/ACIDEPHILUS [Concomitant]
  13. COQ10 [Concomitant]
     Active Substance: UBIDECARENONE
  14. LISINOPRIL. [Concomitant]
     Active Substance: LISINOPRIL
  15. COLON CARE HERBAL CLEANSES [Concomitant]
  16. ASPIRIN. [Concomitant]
     Active Substance: ASPIRIN
  17. CAL/MAG/ZINC [Concomitant]

REACTIONS (5)
  - Peripheral swelling [None]
  - Swelling [None]
  - Musculoskeletal stiffness [None]
  - Ligament rupture [None]
  - Pain [None]

NARRATIVE: CASE EVENT DATE: 20150821
